FAERS Safety Report 11657375 (Version 2)
Quarter: 2015Q4

REPORT INFORMATION
  Report Type: Report from Study
  Country: US (occurrence: US)
  Receive Date: 20151023
  Receipt Date: 20151027
  Transmission Date: 20160304
  Serious: Yes (Other)
  Sender: FDA-Public Use
  Company Number: US-ABBVIE-15P-163-1335096-00

PATIENT
  Age: 34 Year
  Sex: Female
  Weight: 74.91 kg

DRUGS (6)
  1. AMBIEN [Concomitant]
     Active Substance: ZOLPIDEM TARTRATE
     Indication: INSOMNIA
  2. LUPRON DEPOT [Suspect]
     Active Substance: LEUPROLIDE ACETATE
     Indication: ENDOMETRIOSIS
     Route: 030
     Dates: start: 20150105
  3. XANAX [Concomitant]
     Active Substance: ALPRAZOLAM
     Indication: SEIZURE
  4. XANAX [Concomitant]
     Active Substance: ALPRAZOLAM
     Indication: PANIC ATTACK
  5. KEPPRA [Concomitant]
     Active Substance: LEVETIRACETAM
     Indication: EPILEPSY
  6. PROAIR HFA [Concomitant]
     Active Substance: ALBUTEROL SULFATE
     Indication: ASTHMA

REACTIONS (13)
  - Menstrual disorder [Recovering/Resolving]
  - Pain [Recovered/Resolved]
  - Dysphagia [Recovering/Resolving]
  - Night sweats [Not Recovered/Not Resolved]
  - Vaginal discharge [Not Recovered/Not Resolved]
  - Hot flush [Not Recovered/Not Resolved]
  - Adnexa uteri pain [Recovered/Resolved]
  - Pain [Not Recovered/Not Resolved]
  - Menorrhagia [Not Recovered/Not Resolved]
  - Seizure [Recovered/Resolved]
  - Nipple pain [Recovered/Resolved]
  - Fatigue [Not Recovered/Not Resolved]
  - Insomnia [Not Recovered/Not Resolved]

NARRATIVE: CASE EVENT DATE: 201501
